FAERS Safety Report 4654943-4 (Version None)
Quarter: 2005Q2

REPORT INFORMATION
  Report Type: 
  Country: None (occurrence: None)
  Receive Date: 20050504
  Receipt Date: 20050421
  Transmission Date: 20051028
  Serious: Yes (Hospitalization)
  Sender: FDA-Public Use
  Company Number: KII-2005-0016301

PATIENT
  Age: 66 Year
  Sex: Male

DRUGS (3)
  1. MORPHINE SULFATE [Suspect]
     Dosage: INTRAMUSCULAR
     Route: 030
  2. HYDROMORPHONE HCL [Suspect]
     Dosage: PARENTERAL
     Route: 051
  3. FENTANYL [Suspect]
     Dosage: PARENTERAL
     Route: 051

REACTIONS (3)
  - ATRIAL FIBRILLATION [None]
  - COMA [None]
  - HYPERCAPNIA [None]
